FAERS Safety Report 8450560-9 (Version None)
Quarter: 2012Q2

REPORT INFORMATION
  Report Type: 
  Country: None (occurrence: None)
  Receive Date: 20120614
  Receipt Date: 20120614
  Transmission Date: 20120825
  Serious: Yes (Hospitalization, Disabling)
  Sender: FDA-Public Use
  Company Number: None

PATIENT
  Age: 89 Year
  Sex: Female
  Weight: 68.5 kg

DRUGS (1)
  1. XARELTO [Suspect]
     Indication: ATRIAL FIBRILLATION
     Dosage: 15 MG DAILY PO
     Route: 048
     Dates: start: 20120425, end: 20120428

REACTIONS (4)
  - APPETITE DISORDER [None]
  - HEMIPARESIS [None]
  - VIITH NERVE PARALYSIS [None]
  - ASTHENIA [None]
